FAERS Safety Report 16169164 (Version 2)
Quarter: 2019Q2

REPORT INFORMATION
  Report Type: Report from Study
  Country: BE (occurrence: BE)
  Receive Date: 20190408
  Receipt Date: 20190430
  Transmission Date: 20190711
  Serious: Yes (Other)
  Sender: FDA-Public Use
  Company Number: BE-BAYER-2018-225728

PATIENT
  Age: 52 Year
  Sex: Female

DRUGS (1)
  1. STIVARGA [Suspect]
     Active Substance: REGORAFENIB
     Indication: COLORECTAL CANCER
     Dosage: 160 MG
     Dates: start: 20181126

REACTIONS (14)
  - Gastrointestinal disorder [Recovering/Resolving]
  - Gastrointestinal motility disorder [Not Recovered/Not Resolved]
  - Urticaria [Recovered/Resolved]
  - Hypertension [Recovering/Resolving]
  - Amenorrhoea [Recovered/Resolved]
  - Hyperglycaemia [Not Recovered/Not Resolved]
  - Decreased appetite [Recovering/Resolving]
  - Skin discolouration [Recovered/Resolved]
  - Alopecia [Recovered/Resolved]
  - Throat irritation [None]
  - Induration [Recovered/Resolved]
  - Gastrointestinal pain [Not Recovered/Not Resolved]
  - Palmar-plantar erythrodysaesthesia syndrome [Not Recovered/Not Resolved]
  - Fatigue [Not Recovered/Not Resolved]

NARRATIVE: CASE EVENT DATE: 20181204
